FAERS Safety Report 20012626 (Version 1)
Quarter: 2021Q4

REPORT INFORMATION
  Report Type: Spontaneous
  Country: ES (occurrence: ES)
  Receive Date: 20211029
  Receipt Date: 20211029
  Transmission Date: 20220303
  Serious: Yes (Other)
  Sender: FDA-Public Use
  Company Number: None

PATIENT
  Age: 54 Year
  Sex: Female
  Weight: 65 kg

DRUGS (2)
  1. PACLITAXEL [Suspect]
     Active Substance: PACLITAXEL
     Indication: Breast neoplasm
     Dosage: 240 MILLIGRAM/SQ. METER, 28D CYCLE (80 MG / M2 / D?AS 1,8 Y 15 / 28 D?AS)
     Route: 042
     Dates: start: 20210323, end: 20210518
  2. BEVACIZUMAB [Concomitant]
     Active Substance: BEVACIZUMAB
     Indication: Breast neoplasm
     Dosage: UNK (5 MG / KG / D?A, D?AS 1 Y 15 / 28 D?AS)
     Route: 042
     Dates: start: 20210323

REACTIONS (1)
  - Hepatotoxicity [Not Recovered/Not Resolved]

NARRATIVE: CASE EVENT DATE: 20210518
